FAERS Safety Report 9181498 (Version 1)
Quarter: 2013Q1

REPORT INFORMATION
  Report Type: Spontaneous
  Country: US (occurrence: US)
  Receive Date: 20130322
  Receipt Date: 20130322
  Transmission Date: 20140127
  Serious: Yes (Death)
  Sender: FDA-Public Use
  Company Number: US-009507513-1303USA010914

PATIENT
  Age: 49 Year
  Sex: Male

DRUGS (10)
  1. VICTRELIS [Suspect]
  2. NEXAVAR [Suspect]
     Dosage: 200 MG, BID
     Route: 048
     Dates: end: 201202
  3. PROTONIX [Concomitant]
  4. DILAUDID [Concomitant]
  5. LISINOPRIL [Concomitant]
  6. VALIUM [Concomitant]
  7. OXYCODONE [Concomitant]
  8. MIRALAX [Concomitant]
  9. OXYCONTIN [Concomitant]
  10. NEUPOGEN [Concomitant]

REACTIONS (1)
  - Death [Fatal]
